FAERS Safety Report 8067473 (Version 6)
Quarter: 2012Q4

REPORT INFORMATION
  Report Type: Report from Study
  Country: JP (occurrence: JP)
  Receive Date: 20110803
  Receipt Date: 20120829
  Transmission Date: 20130627
  Serious: Yes (Hospitalization)
  Sender: FDA-Public Use
  Company Number: JP-GLAXOSMITHKLINE-B0735817A

PATIENT
  Age: 74 Year
  Sex: Male
  Weight: 53 kg

DRUGS (14)
  1. ELTROMBOPAG OLAMINE [Suspect]
     Indication: IDIOPATHIC THROMBOCYTOPENIC PURPURA
     Dosage: 12.5MG Per day
     Route: 048
     Dates: start: 20110614, end: 20110705
  2. ELTROMBOPAG OLAMINE [Suspect]
     Indication: IDIOPATHIC THROMBOCYTOPENIC PURPURA
     Dosage: 25MG Per day
     Route: 048
     Dates: start: 20110706, end: 20110727
  3. ELTROMBOPAG OLAMINE [Suspect]
     Indication: IDIOPATHIC THROMBOCYTOPENIC PURPURA
     Dosage: 12.5MG Per day
     Route: 048
     Dates: start: 20110728, end: 20110810
  4. ELTROMBOPAG OLAMINE [Suspect]
     Indication: IDIOPATHIC THROMBOCYTOPENIC PURPURA
     Dosage: 25MG Per day
     Route: 048
     Dates: start: 20110811, end: 20120531
  5. ZYLORIC [Concomitant]
     Dosage: 200MG Per day
     Route: 048
  6. WARFARIN [Concomitant]
     Dosage: 3MG Per day
     Route: 048
  7. FUROSEMIDE [Concomitant]
     Dosage: 20MG Per day
     Route: 048
  8. AMLODIN [Concomitant]
     Dosage: 5MG Per day
     Route: 048
  9. ZETIA [Concomitant]
     Dosage: 10MG Per day
     Route: 048
  10. OLMESARTAN MEDOXOMIL [Concomitant]
     Dosage: 10MG Per day
     Route: 048
  11. AROTINOLOL HYDROCHLORIDE [Concomitant]
     Dosage: 20MG Per day
     Route: 048
  12. TAKEPRON [Concomitant]
     Dosage: 30MG Per day
     Route: 048
  13. PREDONINE [Concomitant]
     Indication: IDIOPATHIC THROMBOCYTOPENIC PURPURA
     Dosage: 15MG Per day
     Route: 048
  14. BAYASPIRIN [Concomitant]
     Dosage: 100MG Per day
     Route: 048

REACTIONS (2)
  - Anaemia [Recovered/Resolved]
  - Cerebral haemorrhage [Not Recovered/Not Resolved]
